FAERS Safety Report 14683788 (Version 1)
Quarter: 2018Q1

REPORT INFORMATION
  Report Type: Spontaneous
  Country: US (occurrence: US)
  Receive Date: 20180327
  Receipt Date: 20180327
  Transmission Date: 20180509
  Serious: No
  Sender: FDA-Public Use
  Company Number: US-TEVA-2018-US-876017

PATIENT

DRUGS (1)
  1. OMEGA-3-ACID ETHYL ESTERS CAPSULES, USP ONE GRAM CAPSULE [Suspect]
     Active Substance: OMEGA-3-ACID ETHYL ESTERS

REACTIONS (3)
  - Discomfort [Unknown]
  - Product odour abnormal [Unknown]
  - Dysgeusia [Unknown]
